FAERS Safety Report 10453214 (Version 1)
Quarter: 2014Q3

REPORT INFORMATION
  Report Type: Spontaneous
  Country: US (occurrence: US)
  Receive Date: 20140915
  Receipt Date: 20140915
  Transmission Date: 20150326
  Serious: No
  Sender: FDA-Public Use
  Company Number: US-ABBVIE-14P-163-1238500-00

PATIENT
  Age: 43 Year
  Sex: Male
  Weight: 217.92 kg

DRUGS (3)
  1. DEPAKOTE [Suspect]
     Active Substance: DIVALPROEX SODIUM
     Indication: EPILEPSY
     Dosage: 6 CAPSULES IN AM AND 6 CAPSULES IN PM
     Route: 048
     Dates: start: 1986
  2. ZONEGRAN [Concomitant]
     Active Substance: ZONISAMIDE
     Indication: EPILEPSY
  3. ZARONTIN [Concomitant]
     Active Substance: ETHOSUXIMIDE
     Indication: EPILEPSY

REACTIONS (4)
  - Blood insulin increased [Unknown]
  - Increased appetite [Recovered/Resolved]
  - Leptin level increased [Unknown]
  - Weight increased [Not Recovered/Not Resolved]

NARRATIVE: CASE EVENT DATE: 1986
